FAERS Safety Report 19084310 (Version 1)
Quarter: 2021Q2

REPORT INFORMATION
  Report Type: Spontaneous
  Country: US (occurrence: US)
  Receive Date: 20210401
  Receipt Date: 20210401
  Transmission Date: 20210717
  Serious: No
  Sender: FDA-Public Use
  Company Number: US-BAYER-2021-116291

PATIENT
  Age: 4 Year
  Sex: Male

DRUGS (1)
  1. CLARITIN [Suspect]
     Active Substance: LORATADINE
     Dosage: UNK,  A TABLET LAST NIGHT AT 8PM THEN 1 THIS MORING AT 8:45 AM
     Route: 065
     Dates: start: 20210331

REACTIONS (1)
  - Extra dose administered [Unknown]
